FAERS Safety Report 6177577-1 (Version None)
Quarter: 2009Q2

REPORT INFORMATION
  Report Type: 
  Country: None (occurrence: None)
  Receive Date: 20090501
  Receipt Date: 20090501
  Transmission Date: 20091009
  Serious: Yes (Death)
  Sender: FDA-Public Use
  Company Number: None

PATIENT
  Age: 58 Year
  Sex: Female

DRUGS (10)
  1. HYDRALAZINE HCL [Suspect]
     Indication: HYPERTENSION
     Dosage: 20MG IVP X 1
     Route: 042
     Dates: start: 20090308
  2. METHADONE [Concomitant]
  3. METOPROLOL [Concomitant]
  4. WARFARIN SODIUM [Concomitant]
  5. HYDROMORPHONE HCL [Concomitant]
  6. MAALOX [Concomitant]
  7. PREDNISONE [Concomitant]
  8. KAYEXALATE [Concomitant]
  9. TACROLIMUS [Concomitant]
  10. BACTRIM [Concomitant]

REACTIONS (1)
  - CARDIO-RESPIRATORY ARREST [None]
